FAERS Safety Report 11307678 (Version 6)
Quarter: 2016Q1

REPORT INFORMATION
  Report Type: Report from Study
  Country: TH (occurrence: TH)
  Receive Date: 20150724
  Receipt Date: 20160126
  Transmission Date: 20160525
  Serious: Yes (Hospitalization)
  Sender: FDA-Public Use
  Company Number: TH-ROCHE-1611575

PATIENT
  Age: 66 Year
  Sex: Male
  Weight: 85 kg

DRUGS (8)
  1. BLINDED VERTEPORFIN PDT [Suspect]
     Active Substance: VERTEPORFIN
     Indication: POLYPOIDAL CHOROIDAL VASCULOPATHY
     Dosage: DATE OF LAST DOSE ADMINISTERED WAS 18/JUN/2015
     Route: 050
     Dates: start: 20140718
  2. RANIBIZUMAB [Suspect]
     Active Substance: RANIBIZUMAB
     Indication: POLYPOIDAL CHOROIDAL VASCULOPATHY
     Dosage: DATE OF LAST DOSE ADMINISTERED WAS 18/JUN/2015
     Route: 050
     Dates: start: 20140718
  3. METFORMIN [Concomitant]
     Active Substance: METFORMIN HYDROCHLORIDE
     Route: 065
     Dates: start: 2013
  4. HYDROCHLOROTHIAZIDE. [Concomitant]
     Active Substance: HYDROCHLOROTHIAZIDE
     Route: 065
     Dates: start: 2013
  5. RANIBIZUMAB [Suspect]
     Active Substance: RANIBIZUMAB
     Dosage: MOST RECENT DOSE PRIOR TO ADVERSE EVENT : 18/JUN/2015
     Route: 050
     Dates: start: 20150618
  6. BLINDED VERTEPORFIN PDT [Suspect]
     Active Substance: VERTEPORFIN
     Dosage: MOST RECENT DOSE PRIOR TO ADVERSE EVENT : 18/JUN/2015
     Route: 050
     Dates: start: 20150618
  7. GLIBENCLAMIDE [Concomitant]
     Active Substance: GLYBURIDE
     Route: 065
     Dates: start: 2013
  8. NIFEDIPINE. [Concomitant]
     Active Substance: NIFEDIPINE
     Route: 065
     Dates: start: 2013

REACTIONS (2)
  - Muscular weakness [Recovering/Resolving]
  - Dyspnoea [Recovered/Resolved]

NARRATIVE: CASE EVENT DATE: 20150713
